FAERS Safety Report 6655947-2 (Version None)
Quarter: 2010Q1

REPORT INFORMATION
  Report Type: 
  Country: None (occurrence: None)
  Receive Date: 20100329
  Receipt Date: 20100319
  Transmission Date: 20100710
  Serious: Yes (Other)
  Sender: FDA-Public Use
  Company Number: PHHY2009BR51731

PATIENT
  Sex: Male

DRUGS (4)
  1. FORASEQ [Suspect]
     Dosage: 12/400 MCG
  2. ALDACTONE [Suspect]
     Dosage: 25 MG
  3. GARDENAL [Suspect]
     Dosage: 40 MG
  4. FORASINA [Suspect]

REACTIONS (2)
  - CARDIOMEGALY [None]
  - FATIGUE [None]
